FAERS Safety Report 6268833-7 (Version None)
Quarter: 2009Q3

REPORT INFORMATION
  Report Type: 
  Country: None (occurrence: None)
  Receive Date: 20090710
  Receipt Date: 20090710
  Transmission Date: 20100115
  Serious: Yes (Other)
  Sender: FDA-Public Use
  Company Number: None

PATIENT
  Sex: Female
  Weight: 82.1011 kg

DRUGS (1)
  1. KEPPRA [Suspect]
     Indication: NEUROPATHY PERIPHERAL
     Dosage: 500MG TID PO
     Route: 048
     Dates: start: 20090326, end: 20090630

REACTIONS (3)
  - BURNING SENSATION [None]
  - CRYING [None]
  - HEADACHE [None]
